FAERS Safety Report 8522674-6 (Version None)
Quarter: 2012Q3

REPORT INFORMATION
  Report Type: 
  Country: None (occurrence: None)
  Receive Date: 20120719
  Receipt Date: 20120712
  Transmission Date: 20120928
  Serious: Yes (Congenital Anomaly)
  Sender: FDA-Public Use
  Company Number: US-GLAXOSMITHKLINE-A0953435A

PATIENT
  Sex: Male

DRUGS (3)
  1. DEPAKOTE [Concomitant]
  2. MULTI-VITAMINS [Concomitant]
  3. PAXIL [Suspect]
     Indication: DEPRESSION
     Dosage: 20MG PER DAY
     Route: 064
     Dates: start: 20020101, end: 20020501

REACTIONS (3)
  - COARCTATION OF THE AORTA [None]
  - CONGENITAL HEART VALVE DISORDER [None]
  - FOETAL EXPOSURE DURING PREGNANCY [None]
